FAERS Safety Report 6550036-X (Version None)
Quarter: 2010Q1

REPORT INFORMATION
  Report Type: 
  Country: None (occurrence: None)
  Receive Date: 20100125
  Receipt Date: 20100112
  Transmission Date: 20100710
  Serious: No
  Sender: FDA-Public Use
  Company Number: US-JNJFOC-20100105215

PATIENT
  Sex: Male
  Weight: 73.48 kg

DRUGS (4)
  1. DURAGESIC-100 [Suspect]
     Indication: RADICULAR PAIN
     Route: 062
  2. DURAGESIC-100 [Suspect]
     Route: 062
  3. FLEXERIL [Concomitant]
     Indication: MUSCLE SPASMS
     Route: 048
  4. DIAZEPAM [Concomitant]
     Indication: MUSCLE SPASMS
     Route: 048

REACTIONS (2)
  - FEELING HOT [None]
  - WRONG TECHNIQUE IN DRUG USAGE PROCESS [None]
